FAERS Safety Report 5754182-X (Version None)
Quarter: 2008Q2

REPORT INFORMATION
  Report Type: 
  Country: None (occurrence: None)
  Receive Date: 20080530
  Receipt Date: 20080522
  Transmission Date: 20081010
  Serious: Yes (Other)
  Sender: FDA-Public Use
  Company Number: FR-BRISTOL-MYERS SQUIBB COMPANY-14200844

PATIENT
  Age: 36 Year
  Sex: Female

DRUGS (5)
  1. BMS690514 [Suspect]
     Indication: NEOPLASM
     Dosage: INTERRUPTED ON 16MAY08. 1 DOSAGE FORM = 150 (UNITS NOT PROVIDED ).
     Route: 048
     Dates: start: 20080507
  2. FLUOROURACIL [Suspect]
     Indication: NEOPLASM
     Dosage: INTERRUPTED ON 02-MAY-2008.
     Route: 042
     Dates: start: 20080430
  3. LEUCOVORIN CALCIUM [Suspect]
     Indication: NEOPLASM
     Dosage: INTERRUPTED ON 02-MAY-2008.
     Route: 042
     Dates: start: 20080430
  4. IRINOTECAN HCL [Suspect]
     Indication: NEOPLASM
     Dosage: INTERRUPTED ON 02-MAY-2008.
     Route: 042
     Dates: start: 20080430
  5. LOPERAMIDE HCL [Concomitant]
     Dates: start: 20080502

REACTIONS (1)
  - NEUTROPENIA [None]
